FAERS Safety Report 8355710-0 (Version None)
Quarter: 2012Q2

REPORT INFORMATION
  Report Type: 
  Country: None (occurrence: None)
  Receive Date: 20120510
  Receipt Date: 20120501
  Transmission Date: 20120825
  Serious: Yes (Hospitalization)
  Sender: FDA-Public Use
  Company Number: JPI-P-020606

PATIENT
  Age: 53 Year
  Sex: Male

DRUGS (16)
  1. PROTRIPTYLINE HCL [Suspect]
     Indication: PRODUCT USED FOR UNKNOWN INDICATION
  2. CICLESONIDE [Concomitant]
  3. MULTIPLE VITAMINS [Concomitant]
  4. ALBUTEROL SULFATE [Concomitant]
  5. AMPHETAMINE DEXTROAMPHETAMINE MIXED SALTS [Concomitant]
  6. OMEGA-3-ACID ETHYL ESTERS (LOVAZA) [Concomitant]
  7. TESTOSTERONE [Concomitant]
  8. TRIAMCINOLONE ACETONIDE [Concomitant]
  9. LITHIUM CARBONATE [Concomitant]
  10. MONTLUKAST SODIUM [Concomitant]
  11. XYREM [Suspect]
     Indication: NARCOLEPSY
     Dosage: 8 GM (4 GM,2 IN 1 D),ORAL ; 9 GM (4.5 GM,2 IN 1 D),ORAL
     Route: 048
     Dates: start: 20070730
  12. XYREM [Suspect]
     Indication: SLEEP DISORDER
     Dosage: 8 GM (4 GM,2 IN 1 D),ORAL ; 9 GM (4.5 GM,2 IN 1 D),ORAL
     Route: 048
     Dates: start: 20070730
  13. XYREM [Suspect]
     Indication: NARCOLEPSY
     Dosage: 8 GM (4 GM,2 IN 1 D),ORAL ; 9 GM (4.5 GM,2 IN 1 D),ORAL
     Route: 048
     Dates: start: 20070824
  14. XYREM [Suspect]
     Indication: SLEEP DISORDER
     Dosage: 8 GM (4 GM,2 IN 1 D),ORAL ; 9 GM (4.5 GM,2 IN 1 D),ORAL
     Route: 048
     Dates: start: 20070824
  15. OXYCODONE HYDROCHLORIDE [Concomitant]
  16. ALBUTEROL SULFATE AND IPRATROPIUM BROMIDE [Concomitant]

REACTIONS (27)
  - PNEUMONIA [None]
  - GASTROOESOPHAGEAL REFLUX DISEASE [None]
  - DYSKINESIA [None]
  - HALLUCINATION [None]
  - ABNORMAL BEHAVIOUR [None]
  - MENTAL DISORDER [None]
  - DRUG EFFECT DECREASED [None]
  - NEUROPATHY PERIPHERAL [None]
  - AGGRESSION [None]
  - DELUSION [None]
  - SOMNAMBULISM [None]
  - URINARY INCONTINENCE [None]
  - SEASONAL AFFECTIVE DISORDER [None]
  - FUNGAL INFECTION [None]
  - DRUG DOSE OMISSION [None]
  - PAIN IN EXTREMITY [None]
  - BIPOLAR DISORDER [None]
  - WEIGHT FLUCTUATION [None]
  - SNORING [None]
  - HYPERSOMNIA [None]
  - SOMNOLENCE [None]
  - PSYCHOTIC DISORDER [None]
  - MANIA [None]
  - INSOMNIA [None]
  - EMOTIONAL DISTRESS [None]
  - TREATMENT NONCOMPLIANCE [None]
  - ALTERED STATE OF CONSCIOUSNESS [None]
